FAERS Safety Report 15885693 (Version 2)
Quarter: 2019Q2

REPORT INFORMATION
  Report Type: Report from Study
  Country: CA (occurrence: CA)
  Receive Date: 20190129
  Receipt Date: 20190510
  Transmission Date: 20190711
  Serious: Yes (Death)
  Sender: FDA-Public Use
  Company Number: CA-TAIHO ONCOLOGY  INC-EU-2019-00249

PATIENT
  Age: 86 Year
  Sex: Male
  Weight: 50 kg

DRUGS (8)
  1. LONSURF [Suspect]
     Active Substance: TIPIRACIL HYDROCHLORIDE\TRIFLURIDINE
     Indication: COLORECTAL CANCER METASTATIC
     Dosage: CYCLE 1 ENDED ON 04/SEP/2018.?CYCLE 2 STARTED ON 05/SEP/2018 AND ENDED ON 02/OCT/2018.?CYCLE 3 START
     Route: 048
     Dates: start: 20180808, end: 20181228
  2. SUSTIVA [Concomitant]
     Active Substance: EFAVIRENZ
     Dosage: NI
  3. ABACAVIR. [Concomitant]
     Active Substance: ABACAVIR
     Dosage: NI
  4. LIPITOR [Concomitant]
     Active Substance: ATORVASTATIN CALCIUM
     Dosage: NI
  5. COLACE [Concomitant]
     Active Substance: DOCUSATE SODIUM
     Dosage: NI
  6. HEPTOVIR [Concomitant]
     Active Substance: LAMIVUDINE
     Dosage: NI
  7. ZOLPIDEM [Concomitant]
     Active Substance: ZOLPIDEM\ZOLPIDEM TARTRATE
     Dosage: NI
  8. EZETROL [Concomitant]
     Active Substance: EZETIMIBE
     Dosage: NI

REACTIONS (1)
  - Disease progression [Fatal]

NARRATIVE: CASE EVENT DATE: 20190116
